FAERS Safety Report 22099090 (Version 1)
Quarter: 2023Q1

REPORT INFORMATION
  Report Type: Spontaneous
  Country: MX (occurrence: MX)
  Receive Date: 20230315
  Receipt Date: 20230315
  Transmission Date: 20230418
  Serious: Yes (Hospitalization)
  Sender: FDA-Public Use
  Company Number: MX-ELI_LILLY_AND_COMPANY-MX202303003401

PATIENT
  Age: 80 Year
  Sex: Female
  Weight: 80 kg

DRUGS (19)
  1. OLANZAPINE [Suspect]
     Active Substance: OLANZAPINE
     Indication: Depression
     Dosage: 02 DOSAGE FORM, SINGLE
     Route: 048
     Dates: start: 20230130, end: 20230130
  2. DULOXETINE [Concomitant]
     Active Substance: DULOXETINE
     Indication: Product used for unknown indication
     Dosage: UNK UNK, UNKNOWN
     Route: 048
     Dates: start: 2001, end: 20230130
  3. BUMETANIDE [Concomitant]
     Active Substance: BUMETANIDE
     Indication: Product used for unknown indication
     Dosage: UNK UNK, UNKNOWN
     Route: 048
     Dates: start: 1999, end: 20220603
  4. RIVAROXABAN [Concomitant]
     Active Substance: RIVAROXABAN
     Indication: Prophylaxis
     Dosage: UNK UNK, UNKNOWN
     Route: 048
     Dates: start: 2016
  5. METFORMIN [Concomitant]
     Active Substance: METFORMIN HYDROCHLORIDE
     Indication: Type 2 diabetes mellitus
     Dosage: 850 MG, DAILY
     Route: 048
     Dates: start: 1995
  6. TELMISARTAN [Concomitant]
     Active Substance: TELMISARTAN
     Indication: Product used for unknown indication
     Dosage: UNK UNK, UNKNOWN
     Route: 048
     Dates: start: 1995, end: 20220603
  7. TELMISARTAN [Concomitant]
     Active Substance: TELMISARTAN
     Dosage: UNK UNK, UNKNOWN
     Route: 048
     Dates: start: 20230130
  8. AMLODIPINE [Concomitant]
     Active Substance: AMLODIPINE BESYLATE
     Indication: Product used for unknown indication
     Dosage: UNK UNK, UNKNOWN
     Route: 048
     Dates: start: 1995
  9. FOLIC ACID [Concomitant]
     Active Substance: FOLIC ACID
     Indication: Prophylaxis
     Dosage: UNK UNK, UNKNOWN
     Route: 048
     Dates: start: 2016, end: 20230130
  10. CALCIUM CARBONATE [Concomitant]
     Active Substance: CALCIUM CARBONATE
     Indication: Product used for unknown indication
     Dosage: UNK UNK, UNKNOWN
     Route: 048
     Dates: start: 2005, end: 20230130
  11. PIROXICAM [Concomitant]
     Active Substance: PIROXICAM
     Indication: Product used for unknown indication
     Dosage: UNK UNK, UNKNOWN
     Route: 048
     Dates: start: 2005
  12. ATORVASTATIN [Concomitant]
     Active Substance: ATORVASTATIN
     Indication: Product used for unknown indication
     Dosage: UNK UNK, UNKNOWN
     Route: 048
     Dates: start: 2017, end: 20230130
  13. GLUCOSAMIN [GLUCOSAMINE] [Concomitant]
     Indication: Product used for unknown indication
     Dosage: UNK UNK, UNKNOWN
     Route: 048
     Dates: start: 2017, end: 20230130
  14. PREGABALIN [Concomitant]
     Active Substance: PREGABALIN
     Indication: Product used for unknown indication
     Dosage: UNK UNK, UNKNOWN
     Route: 048
     Dates: start: 20230130
  15. FLUOXETINE HYDROCHLORIDE [Concomitant]
     Active Substance: FLUOXETINE HYDROCHLORIDE
     Indication: Product used for unknown indication
     Dosage: UNK UNK, UNKNOWN
     Route: 048
     Dates: start: 20230130
  16. CLONAZEPAM [Concomitant]
     Active Substance: CLONAZEPAM
     Indication: Product used for unknown indication
     Dosage: UNK UNK, UNKNOWN
     Route: 048
     Dates: start: 20230130
  17. OMEPRAZOLE [Concomitant]
     Active Substance: OMEPRAZOLE
     Indication: Product used for unknown indication
     Dosage: UNK UNK, UNKNOWN
     Route: 048
     Dates: start: 20230130
  18. TIZANIDINE [Concomitant]
     Active Substance: TIZANIDINE
     Indication: Product used for unknown indication
     Dosage: UNK UNK, UNKNOWN
     Route: 048
     Dates: start: 20230130
  19. POLYETHYLENE GLYCOLS [Concomitant]
     Active Substance: POLYETHYLENE GLYCOLS
     Indication: Product used for unknown indication
     Dosage: UNK UNK, UNKNOWN
     Route: 048
     Dates: start: 20230130

REACTIONS (7)
  - General physical health deterioration [Unknown]
  - Heart rate abnormal [Unknown]
  - Respiration abnormal [Unknown]
  - Disorientation [Unknown]
  - Accidental overdose [Recovered/Resolved]
  - Blood pressure decreased [Unknown]
  - Somnolence [Unknown]

NARRATIVE: CASE EVENT DATE: 20230130
